FAERS Safety Report 5927616-5 (Version None)
Quarter: 2008Q4

REPORT INFORMATION
  Report Type: 
  Country: None (occurrence: None)
  Receive Date: 20081021
  Receipt Date: 20081021
  Transmission Date: 20090506
  Serious: Yes (Hospitalization)
  Sender: FDA-Public Use
  Company Number: None

PATIENT
  Age: 78 Year
  Sex: Female

DRUGS (10)
  1. WARFARIN SODIUM [Suspect]
     Indication: ATRIAL FIBRILLATION
     Dosage: 5 MG Q DAY PO
     Route: 048
     Dates: start: 20080531, end: 20080807
  2. LANTUS [Concomitant]
  3. HUMALOG [Concomitant]
  4. LASIX [Concomitant]
  5. COZAAR [Concomitant]
  6. POTASSIUM CHLORIDE [Concomitant]
  7. DIGOXIN [Concomitant]
  8. ZOCOR [Concomitant]
  9. CALCIUM [Concomitant]
  10. FISH OIL [Concomitant]

REACTIONS (1)
  - HAEMATOMA [None]
